FAERS Safety Report 19656551 (Version 1)
Quarter: 2021Q3

REPORT INFORMATION
  Report Type: Report from Study
  Country: ES (occurrence: ES)
  Receive Date: 20210804
  Receipt Date: 20210804
  Transmission Date: 20211014
  Serious: Yes (Death, Other)
  Sender: FDA-Public Use
  Company Number: ES-SA-2021SA253670

PATIENT

DRUGS (2)
  1. NO STUDY DRUG GIVEN MKT [Suspect]
     Active Substance: UNSPECIFIED INGREDIENT
  2. MYOZYME [Suspect]
     Active Substance: ALGLUCOSIDASE ALFA
     Indication: GLYCOGEN STORAGE DISEASE TYPE II

REACTIONS (4)
  - Cardiopulmonary failure [Fatal]
  - Hypersensitivity [Unknown]
  - Hypotonia [Unknown]
  - Disease progression [Unknown]
